FAERS Safety Report 9031808 (Version 1)
Quarter: 2013Q1

REPORT INFORMATION
  Report Type: Spontaneous
  Country: GB (occurrence: GB)
  Receive Date: 20130124
  Receipt Date: 20130124
  Transmission Date: 20140127
  Serious: Yes (Other)
  Sender: FDA-Public Use
  Company Number: GB-NICOBRDEVP-2013-00840

PATIENT
  Sex: Male

DRUGS (4)
  1. BISOPROLOL (UNKNOWN) [Suspect]
     Indication: HEART RATE IRREGULAR
     Dosage: 2.5 MG, DAILY
     Route: 065
  2. LOSARTAN POTASSIUM (UNKNOWN) [Suspect]
     Indication: AORTIC ANEURYSM
     Dosage: 100 MG, DAILY
     Route: 065
  3. BENDROFLUMETHIAZIDE [Suspect]
     Indication: PRODUCT USED FOR UNKNOWN INDICATION
     Dosage: ONLY TAKES 1.25 MG, BUT 2.5 MG RECOMMENDED
     Route: 065
  4. ACETYLSALICYLIC ACID [Suspect]
     Indication: PRODUCT USED FOR UNKNOWN INDICATION
     Dosage: UNK, UNKNOWN
     Route: 065

REACTIONS (7)
  - Cardiac failure [Unknown]
  - Dyspnoea [Unknown]
  - Abdominal distension [Unknown]
  - Aneurysm [Unknown]
  - Blood pressure diastolic increased [Unknown]
  - Transient ischaemic attack [Unknown]
  - Drug interaction [Unknown]
